FAERS Safety Report 6955496-8 (Version None)
Quarter: 2010Q3

REPORT INFORMATION
  Report Type: 
  Country: None (occurrence: None)
  Receive Date: 20100830
  Receipt Date: 20100824
  Transmission Date: 20110219
  Serious: Yes (Hospitalization, Other)
  Sender: FDA-Public Use
  Company Number: US-BRISTOL-MYERS SQUIBB COMPANY-15253834

PATIENT
  Age: 64 Year
  Sex: Male
  Weight: 71 kg

DRUGS (7)
  1. CARBOPLATIN [Suspect]
     Indication: NON-SMALL CELL LUNG CANCER
     Dosage: LAST DOSE ON 10AUG2010(217MG) ON DAY 50 LAST DOSE ADM
     Dates: start: 20100621, end: 20100810
  2. ERBITUX [Suspect]
     Indication: NON-SMALL CELL LUNG CANCER
     Dates: start: 20100621, end: 20100817
  3. TAXOL [Suspect]
     Indication: NON-SMALL CELL LUNG CANCER
     Dosage: LAST DOSE ON 10AUG2010(85MG) ON DAY 50
     Dates: start: 20100621, end: 20100810
  4. RADIATION THERAPY [Suspect]
     Indication: NON-SMALL CELL LUNG CANCER
     Dosage: LAST DOSE ON 18AUG10.1 DF=74GY NO.OF FRACTION:27 NO.OF ELASPED DAYS:52
     Dates: start: 20100621
  5. IBUPROFEN [Concomitant]
  6. MAGIC MOUTHWASH [Concomitant]
  7. SILVADENE [Concomitant]
     Dosage: CREAM

REACTIONS (11)
  - DYSPHAGIA [None]
  - FEBRILE NEUTROPENIA [None]
  - NEUTROPHIL COUNT DECREASED [None]
  - OESOPHAGEAL PAIN [None]
  - OESOPHAGITIS [None]
  - PAIN OF SKIN [None]
  - RADIATION SKIN INJURY [None]
  - SKIN INFECTION [None]
  - STOMATITIS [None]
  - THERMAL BURN [None]
  - WHITE BLOOD CELL COUNT DECREASED [None]
